FAERS Safety Report 9159262 (Version 2)
Quarter: 2013Q2

REPORT INFORMATION
  Report Type: Report from Study
  Country: CA (occurrence: CA)
  Receive Date: 20130313
  Receipt Date: 20130614
  Transmission Date: 20140414
  Serious: Yes (Hospitalization, Other)
  Sender: FDA-Public Use
  Company Number: CA-JNJFOC-20130300199

PATIENT
  Age: 54 Year
  Sex: Female
  Weight: 51 kg

DRUGS (20)
  1. REMICADE [Suspect]
     Indication: RHEUMATOID ARTHRITIS
     Route: 042
     Dates: start: 201103
  2. FOLIC ACID [Concomitant]
     Route: 065
  3. HYDROMORPH [Concomitant]
     Route: 065
  4. ASA [Concomitant]
     Route: 065
  5. METOPROLOL [Concomitant]
     Route: 065
  6. PREDNISONE [Concomitant]
     Route: 065
  7. METHOTREXATE [Concomitant]
     Route: 065
  8. HYDROCHLOROTHIAZIDE [Concomitant]
     Route: 065
  9. DIGOXIN [Concomitant]
     Route: 065
  10. RANITIDINE [Concomitant]
     Route: 065
  11. ESTROGEN [Concomitant]
     Route: 065
  12. GLICLAZIDE [Concomitant]
     Route: 065
  13. METFORMIN [Concomitant]
     Route: 065
  14. RAMIPRIL [Concomitant]
     Route: 065
  15. TRIMEBUTINE [Concomitant]
     Route: 065
  16. BUSCOPAN [Concomitant]
     Route: 065
  17. VITAMIN D [Concomitant]
     Route: 065
  18. FLEXERIL [Concomitant]
     Route: 065
  19. ZOPICLONE [Concomitant]
     Route: 065
  20. CALCIUM [Concomitant]
     Route: 065

REACTIONS (3)
  - Cystitis [Recovered/Resolved]
  - Haemoglobin decreased [Unknown]
  - Knee arthroplasty [Recovering/Resolving]
